FAERS Safety Report 5368268-5 (Version None)
Quarter: 2007Q2

REPORT INFORMATION
  Report Type: 
  Country: None (occurrence: None)
  Receive Date: 20070619
  Receipt Date: 20070607
  Transmission Date: 20071010
  Serious: Yes (Life-Threatening, Hospitalization, Disabling)
  Sender: FDA-Public Use
  Company Number: 2217-142

PATIENT
  Age: 60 Year
  Sex: Male

DRUGS (3)
  1. TRIAMCINOLONE [Suspect]
     Indication: NECK PAIN
     Dosage: 40 MG ONCE
  2. TRIAMCINOLONE [Suspect]
     Indication: RADICULAR PAIN
     Dosage: 40 MG ONCE
  3. OMNIPAQUE CONTRAST [Concomitant]

REACTIONS (11)
  - BALANCE DISORDER [None]
  - BRAIN STEM INFARCTION [None]
  - CEREBELLAR INFARCTION [None]
  - CONVULSION [None]
  - DIPLOPIA [None]
  - DISORIENTATION [None]
  - DYSPHASIA [None]
  - GENERAL PHYSICAL HEALTH DETERIORATION [None]
  - HYPERTENSION [None]
  - POST PROCEDURAL COMPLICATION [None]
  - VASOSPASM [None]
